FAERS Safety Report 8196711-5 (Version None)
Quarter: 2012Q1

REPORT INFORMATION
  Report Type: 
  Country: None (occurrence: None)
  Receive Date: 20120309
  Receipt Date: 20120225
  Transmission Date: 20120608
  Serious: Yes (Other)
  Sender: FDA-Public Use
  Company Number: PHHY2012AU019840

PATIENT
  Age: 25 Year
  Sex: Female

DRUGS (1)
  1. METYRAPONE [Suspect]
     Dosage: UNK UKN, UNK

REACTIONS (3)
  - ABORTION SPONTANEOUS [None]
  - MATERNAL EXPOSURE DURING PREGNANCY [None]
  - CORTISOL FREE URINE INCREASED [None]
